FAERS Safety Report 8111733-8 (Version None)
Quarter: 2012Q1

REPORT INFORMATION
  Report Type: 
  Country: None (occurrence: None)
  Receive Date: 20120203
  Receipt Date: 20120130
  Transmission Date: 20120608
  Serious: Yes (Life-Threatening, Hospitalization, Disabling)
  Sender: FDA-Public Use
  Company Number: AT-JNJFOC-20120113249

PATIENT
  Age: 37 Year
  Sex: Female

DRUGS (8)
  1. CLOZAPINE [Suspect]
     Indication: PRODUCT USED FOR UNKNOWN INDICATION
     Route: 065
     Dates: start: 20111221, end: 20111222
  2. CLOZAPINE [Suspect]
     Route: 065
     Dates: start: 20111228
  3. CLOZAPINE [Suspect]
     Route: 065
     Dates: start: 20111223, end: 20111227
  4. LORAZEPAM [Suspect]
     Indication: PRODUCT USED FOR UNKNOWN INDICATION
     Dosage: DOSAGE 4, 5 (UNIT UNSPECIFIED), END DATE WAS 05-JAN
     Route: 065
     Dates: start: 20111214
  5. CLOZAPINE [Suspect]
     Route: 065
     Dates: start: 20111222, end: 20111223
  6. DEPAKENE [Suspect]
     Indication: PRODUCT USED FOR UNKNOWN INDICATION
     Dosage: DOSAGE 1000 (UNIT UNSPECIFIED)
     Route: 065
     Dates: start: 20111214
  7. HALDOL [Suspect]
     Indication: PRODUCT USED FOR UNKNOWN INDICATION
     Route: 065
     Dates: start: 20111214, end: 20111221
  8. LITHIUM CARBONATE [Suspect]
     Indication: PRODUCT USED FOR UNKNOWN INDICATION
     Dosage: DOSAGE 900 (UNIT UNSPECIFIED)
     Route: 065
     Dates: start: 20111214

REACTIONS (2)
  - PLEUROTHOTONUS [None]
  - BLOOD CREATINE PHOSPHOKINASE INCREASED [None]
